FAERS Safety Report 18113464 (Version 1)
Quarter: 2020Q3

REPORT INFORMATION
  Report Type: Spontaneous
  Country: US (occurrence: US)
  Receive Date: 20200804
  Receipt Date: 20200804
  Transmission Date: 20201103
  Serious: No
  Sender: FDA-Public Use
  Company Number: None

PATIENT
  Age: 64 Year
  Sex: Male
  Weight: 85.28 kg

DRUGS (9)
  1. LOVENOX [Concomitant]
     Active Substance: ENOXAPARIN SODIUM
  2. MIRALAX [Concomitant]
     Active Substance: POLYETHYLENE GLYCOL 3350
  3. TYLENOL [Concomitant]
     Active Substance: ACETAMINOPHEN
  4. FAMOTIDINE. [Concomitant]
     Active Substance: FAMOTIDINE
  5. REMDESIVIR 200MG [Suspect]
     Active Substance: REMDESIVIR
     Indication: COVID-19 TREATMENT
     Route: 042
     Dates: start: 20200731, end: 20200801
  6. DEXAMETHASONE. [Concomitant]
     Active Substance: DEXAMETHASONE
  7. BARICITINIB [Concomitant]
     Active Substance: BARICITINIB
  8. INSULIN [Concomitant]
     Active Substance: INSULIN NOS
  9. KETOROLAC [Concomitant]
     Active Substance: KETOROLAC TROMETHAMINE

REACTIONS (1)
  - Transaminases increased [None]

NARRATIVE: CASE EVENT DATE: 20200801
